FAERS Safety Report 15879072 (Version 2)
Quarter: 2019Q1

REPORT INFORMATION
  Report Type: Spontaneous
  Country: US (occurrence: US)
  Receive Date: 20190128
  Receipt Date: 20190128
  Transmission Date: 20190417
  Serious: Yes (Hospitalization)
  Sender: FDA-Public Use
  Company Number: US-UNICHEM PHARMACEUTICALS (USA) INC-UCM201806-000151

PATIENT
  Sex: Female

DRUGS (4)
  1. MELOXICAM. [Suspect]
     Active Substance: MELOXICAM
  2. VITAMIN [Concomitant]
     Active Substance: VITAMINS
  3. MAALOX ANTACID [Concomitant]
     Active Substance: ALUMINUM HYDROXIDE\DIMETHICONE\MAGNESIUM HYDROXIDE
     Indication: GASTRIC PH INCREASED
  4. DULCOLEX [Concomitant]

REACTIONS (7)
  - Eructation [Unknown]
  - Flatulence [Unknown]
  - Asthenia [Unknown]
  - Constipation [Unknown]
  - Fatigue [Unknown]
  - Malaise [Unknown]
  - Chest pain [Unknown]

NARRATIVE: CASE EVENT DATE: 20180114
